FAERS Safety Report 5413524-5 (Version None)
Quarter: 2007Q3

REPORT INFORMATION
  Report Type: 
  Country: None (occurrence: None)
  Receive Date: 20070810
  Receipt Date: 20070801
  Transmission Date: 20080115
  Serious: Yes (Other)
  Sender: FDA-Public Use
  Company Number: 2007SP014182

PATIENT
  Age: 67 Year
  Sex: Male
  Weight: 90.7194 kg

DRUGS (5)
  1. CLARITIN REDITABS [Suspect]
     Indication: EYE PRURITUS
     Dosage: 10 MG; QD; PO
     Route: 048
     Dates: start: 20070630, end: 20070701
  2. CLARITIN REDITABS [Suspect]
     Indication: LACRIMATION INCREASED
     Dosage: 10 MG; QD; PO
     Route: 048
     Dates: start: 20070630, end: 20070701
  3. CLARITIN REDITABS [Suspect]
     Indication: RHINORRHOEA
     Dosage: 10 MG; QD; PO
     Route: 048
     Dates: start: 20070630, end: 20070701
  4. LOTREL [Concomitant]
  5. ACTOS [Concomitant]

REACTIONS (3)
  - DRUG INEFFECTIVE [None]
  - HYPOAESTHESIA ORAL [None]
  - LIP SWELLING [None]
